FAERS Safety Report 7617972-4 (Version None)
Quarter: 2011Q3

REPORT INFORMATION
  Report Type: 
  Country: None (occurrence: None)
  Receive Date: 20110718
  Receipt Date: 20110706
  Transmission Date: 20111222
  Serious: Yes (Other)
  Sender: FDA-Public Use
  Company Number: PHHY2011US05828

PATIENT
  Sex: Female

DRUGS (5)
  1. TASIGNA [Suspect]
     Indication: CHRONIC MYELOID LEUKAEMIA
     Dosage: 300 MG, BID
     Route: 048
     Dates: start: 20101129
  2. VYTORIN [Concomitant]
     Indication: BLOOD CHOLESTEROL
     Route: 048
  3. XAM [Concomitant]
     Dosage: 1 MG, PRN
  4. LISINOPRIL AND HYDROCHLOROTHIAZIDE [Concomitant]
     Route: 048
  5. FLEXERIL [Concomitant]
     Indication: MUSCLE SPASMS
     Dosage: 10 MG, PRN
     Route: 048

REACTIONS (7)
  - PRURITUS [None]
  - NAUSEA [None]
  - FATIGUE [None]
  - ALOPECIA [None]
  - BURNING SENSATION [None]
  - FOOD CRAVING [None]
  - RASH GENERALISED [None]
